FAERS Safety Report 10083438 (Version 2)
Quarter: 2014Q2

REPORT INFORMATION
  Report Type: Spontaneous
  Country: US (occurrence: None)
  Receive Date: 20140415
  Receipt Date: 20140424
  Transmission Date: 20141212
  Serious: Yes (Disabling)
  Sender: FDA-Public Use
  Company Number: AUR-APL-2014-04317

PATIENT
  Age: 66 Year
  Sex: Female

DRUGS (7)
  1. LOSARTAN (LOSARTAN) [Suspect]
     Indication: HYPERTENSION
     Dosage: (0.5 DOSAGE FORMS,1 D)
     Dates: start: 20140303, end: 20140324
  2. ENJUVIA [Concomitant]
  3. AMLODIPINE [Concomitant]
  4. OMEPRAZOLE? [Concomitant]
  5. PRAVASTATIN [Concomitant]
  6. PANTOPRAZOLE [Concomitant]
  7. IMIPRAMINE [Concomitant]

REACTIONS (7)
  - Fatigue [None]
  - Arthralgia [None]
  - Pain [None]
  - Myalgia [None]
  - Gait disturbance [None]
  - Hypersensitivity [None]
  - Muscular weakness [None]
